FAERS Safety Report 5292205-5 (Version None)
Quarter: 2007Q2

REPORT INFORMATION
  Report Type: 
  Country: None (occurrence: None)
  Receive Date: 20070410
  Receipt Date: 20070330
  Transmission Date: 20071010
  Serious: No
  Sender: FDA-Public Use
  Company Number: 2006UW11163

PATIENT
  Age: 40 Year
  Sex: Female
  Weight: 95.5 kg

DRUGS (2)
  1. SEROQUEL [Suspect]
     Indication: MENTAL DISORDER
     Dosage: 125-300 MG
     Route: 048
     Dates: start: 20001001, end: 20030620
  2. ZYPREXA [Suspect]
     Dosage: 5-40 MG
     Dates: start: 20000901, end: 20001001

REACTIONS (6)
  - BLOOD CHOLESTEROL INCREASED [None]
  - DIABETES MELLITUS [None]
  - HYPERTRIGLYCERIDAEMIA [None]
  - HYPOGLYCAEMIA [None]
  - SOMNOLENCE [None]
  - WEIGHT INCREASED [None]
